FAERS Safety Report 21311306 (Version 2)
Quarter: 2023Q1

REPORT INFORMATION
  Report Type: Spontaneous
  Country: US (occurrence: US)
  Receive Date: 20220909
  Receipt Date: 20230104
  Transmission Date: 20230418
  Serious: Yes (Other)
  Sender: FDA-Public Use
  Company Number: US-BRISTOL-MYERS SQUIBB COMPANY-2022-097977

PATIENT
  Age: 73 Year
  Sex: Male
  Weight: 102 kg

DRUGS (4)
  1. OPDIVO [Suspect]
     Active Substance: NIVOLUMAB
     Indication: Metastatic malignant melanoma
     Dosage: FIRST 2 DOSES
     Dates: start: 202206
  2. OPDIVO [Suspect]
     Active Substance: NIVOLUMAB
     Dates: start: 20220728
  3. YERVOY [Suspect]
     Active Substance: IPILIMUMAB
     Indication: Metastatic malignant melanoma
     Route: 042
     Dates: start: 202206
  4. YERVOY [Suspect]
     Active Substance: IPILIMUMAB
     Dates: start: 20220728

REACTIONS (3)
  - Paraesthesia [Unknown]
  - Cerebrovascular accident [Unknown]
  - Intentional product use issue [Unknown]

NARRATIVE: CASE EVENT DATE: 20220825
